FAERS Safety Report 5354811-9 (Version None)
Quarter: 2007Q2

REPORT INFORMATION
  Report Type: 
  Country: None (occurrence: None)
  Receive Date: 20070611
  Receipt Date: 20070601
  Transmission Date: 20071010
  Serious: Yes (Other)
  Sender: FDA-Public Use
  Company Number: 2007BI009938

PATIENT
  Age: 57 Year
  Sex: Female

DRUGS (4)
  1. AVONEX [Suspect]
     Indication: MULTIPLE SCLEROSIS
     Dosage: 30 UG;QW;IM
     Route: 030
     Dates: start: 20070504
  2. LAMICTAL [Concomitant]
  3. KLONOPIN [Concomitant]
  4. TOPAMAX [Concomitant]

REACTIONS (3)
  - CHILLS [None]
  - PETIT MAL EPILEPSY [None]
  - TREMOR [None]
